FAERS Safety Report 14305549 (Version 1)
Quarter: 2017Q4

REPORT INFORMATION
  Report Type: Spontaneous
  Country: US (occurrence: US)
  Receive Date: 20171219
  Receipt Date: 20171219
  Transmission Date: 20180321
  Serious: Yes (Hospitalization, Other)
  Sender: FDA-Public Use
  Company Number: US-OTSUKA-DJ20114135

PATIENT
  Age: 16 Year
  Sex: Male
  Weight: 61.22 kg

DRUGS (2)
  1. ABILIFY [Suspect]
     Active Substance: ARIPIPRAZOLE
     Indication: SCHIZOAFFECTIVE DISORDER
  2. ABILIFY [Suspect]
     Active Substance: ARIPIPRAZOLE
     Indication: BIPOLAR DISORDER
     Dosage: 20 MG, UNK
     Route: 065

REACTIONS (8)
  - Dyspnoea [Unknown]
  - Back pain [Unknown]
  - Suicide attempt [Unknown]
  - Insomnia [Unknown]
  - Chest pain [Unknown]
  - Lymphadenopathy [Unknown]
  - Irritability [Unknown]
  - Abdominal discomfort [Unknown]

NARRATIVE: CASE EVENT DATE: 20110711
